FAERS Safety Report 6464947-7 (Version None)
Quarter: 2009Q4

REPORT INFORMATION
  Report Type: 
  Country: None (occurrence: None)
  Receive Date: 20091201
  Receipt Date: 20091123
  Transmission Date: 20100525
  Serious: Yes (Other)
  Sender: FDA-Public Use
  Company Number: US-WYE-H12360909

PATIENT
  Sex: Female
  Weight: 88.98 kg

DRUGS (3)
  1. CORDARONE [Suspect]
     Indication: HEART RATE IRREGULAR
     Dosage: NOT PROVIDED
     Dates: start: 19980101
  2. LOTREL [Concomitant]
     Indication: HYPERTENSION
     Dosage: NOT PROVIDED
  3. AMIODARONE HYDROCHLORIDE [Suspect]
     Dosage: AMIODARONE SANDOZ-DOSE NOT PROVIDED
     Dates: start: 20040101

REACTIONS (7)
  - CHRONIC OBSTRUCTIVE PULMONARY DISEASE [None]
  - DEPRESSION [None]
  - LUNG DISORDER [None]
  - NERVOUSNESS [None]
  - SKIN DISCOLOURATION [None]
  - SOMNOLENCE [None]
  - THYROID DISORDER [None]
